FAERS Safety Report 18748729 (Version 8)
Quarter: 2021Q3

REPORT INFORMATION
  Report Type: Spontaneous
  Country: US (occurrence: US)
  Receive Date: 20210115
  Receipt Date: 20210802
  Transmission Date: 20211014
  Serious: Yes (Hospitalization, Other)
  Sender: FDA-Public Use
  Company Number: US-PFIZER INC-2021018660

PATIENT
  Age: 53 Year
  Sex: Female
  Weight: 113.4 kg

DRUGS (1)
  1. LIPITOR [Suspect]
     Active Substance: ATORVASTATIN CALCIUM
     Indication: HYPERCHOLESTEROLAEMIA
     Dosage: 80 MG, 1X/DAY
     Route: 048
     Dates: start: 20120127, end: 20120202

REACTIONS (23)
  - Muscle rupture [Not Recovered/Not Resolved]
  - Vertigo positional [Not Recovered/Not Resolved]
  - Muscle disorder [Not Recovered/Not Resolved]
  - Mental disorder [Unknown]
  - Tissue injury [Unknown]
  - Eating disorder [Not Recovered/Not Resolved]
  - Weight decreased [Unknown]
  - Neuropathy peripheral [Unknown]
  - Depression [Unknown]
  - Erythema [Unknown]
  - Nerve injury [Not Recovered/Not Resolved]
  - Swelling [Unknown]
  - Meralgia paraesthetica [Unknown]
  - Thermal burn [Not Recovered/Not Resolved]
  - Somnolence [Unknown]
  - Deformity [Not Recovered/Not Resolved]
  - Pain [Not Recovered/Not Resolved]
  - Sleep disorder [Not Recovered/Not Resolved]
  - Fibromyalgia [Not Recovered/Not Resolved]
  - Myopathy [Not Recovered/Not Resolved]
  - Arthropathy [Unknown]
  - Limb discomfort [Not Recovered/Not Resolved]
  - Tenderness [Unknown]

NARRATIVE: CASE EVENT DATE: 2012
